FAERS Safety Report 19448169 (Version 2)
Quarter: 2021Q2

REPORT INFORMATION
  Report Type: Spontaneous
  Country: US (occurrence: US)
  Receive Date: 20210622
  Receipt Date: 20210625
  Transmission Date: 20210717
  Serious: Yes (Hospitalization, Other)
  Sender: FDA-Public Use
  Company Number: US-PFIZER INC-2021726863

PATIENT
  Sex: Male
  Weight: 2.02 kg

DRUGS (3)
  1. ERYTHROMYCIN. [Suspect]
     Active Substance: ERYTHROMYCIN
     Indication: CHLAMYDIAL INFECTION
     Dosage: UNK
     Route: 063
  2. NICOTINE. [Suspect]
     Active Substance: NICOTINE
     Dosage: UNK
     Route: 063
  3. COCAINE [Suspect]
     Active Substance: COCAINE
     Dosage: UNK
     Route: 063

REACTIONS (6)
  - Exposure via breast milk [Unknown]
  - Neuropathy peripheral [Unknown]
  - Premature baby [Unknown]
  - Agitation neonatal [Unknown]
  - Neonatal respiratory distress syndrome [Unknown]
  - Brain stem auditory evoked response [Unknown]
